FAERS Safety Report 5240863-3 (Version None)
Quarter: 2007Q1

REPORT INFORMATION
  Report Type: 
  Country: None (occurrence: None)
  Receive Date: 20061208
  Receipt Date: 20050503
  Transmission Date: 20070707
  Serious: Yes (Other)
  Sender: FDA-Public Use
  Company Number: 2005UW06835

PATIENT
  Age: 69 Year
  Sex: Female
  Weight: 81.646 kg

DRUGS (2)
  1. CRESTOR [Suspect]
     Indication: BLOOD CHOLESTEROL INCREASED
     Dosage: 10 MG PO
     Route: 048
     Dates: start: 20050428, end: 20050430
  2. ZESTRIL [Concomitant]

REACTIONS (1)
  - TRIGEMINAL NEURALGIA [None]
